FAERS Safety Report 12242811 (Version 2)
Quarter: 2016Q4

REPORT INFORMATION
  Report Type: Spontaneous
  Country: US (occurrence: US)
  Receive Date: 20160406
  Receipt Date: 20161028
  Transmission Date: 20170207
  Serious: Yes (Other)
  Sender: FDA-Public Use
  Company Number: US-ELI_LILLY_AND_COMPANY-US201604000350

PATIENT
  Sex: Female

DRUGS (2)
  1. CYMBALTA [Suspect]
     Active Substance: DULOXETINE HYDROCHLORIDE
     Indication: DEPRESSION
     Dosage: 60 MG, QD
     Route: 048
     Dates: end: 20140306
  2. CYMBALTA [Suspect]
     Active Substance: DULOXETINE HYDROCHLORIDE
     Indication: PAIN

REACTIONS (23)
  - Neuralgia [Unknown]
  - Diarrhoea [Unknown]
  - Mood swings [Unknown]
  - Cardiac disorder [Unknown]
  - Vomiting [Unknown]
  - Chest pain [Unknown]
  - Dysarthria [Unknown]
  - Crying [Unknown]
  - Nausea [Unknown]
  - Fatigue [Unknown]
  - Hyperhidrosis [Unknown]
  - Anxiety [Unknown]
  - Anger [Unknown]
  - Affect lability [Unknown]
  - Learning disorder [Unknown]
  - Weight increased [Unknown]
  - Paraesthesia [Unknown]
  - Depressed mood [Unknown]
  - Memory impairment [Unknown]
  - Headache [Unknown]
  - Drug withdrawal syndrome [Unknown]
  - Burning sensation [Unknown]
  - Tremor [Unknown]
